FAERS Safety Report 7503675-3 (Version None)
Quarter: 2011Q2

REPORT INFORMATION
  Report Type: 
  Country: None (occurrence: None)
  Receive Date: 20110525
  Receipt Date: 20110519
  Transmission Date: 20111010
  Serious: Yes (Other)
  Sender: FDA-Public Use
  Company Number: TR-US-EMD SERONO, INC.-7056968

PATIENT
  Sex: Female

DRUGS (9)
  1. BENEXOL [Concomitant]
  2. AURIS [Concomitant]
  3. SERTRALINE HYDROCHLORIDE [Concomitant]
  4. FERROUS SULFATE TAB [Concomitant]
  5. ACETAMINOPHEN [Concomitant]
  6. REBIF [Suspect]
     Indication: MULTIPLE SCLEROSIS
     Dates: start: 20070101, end: 20110428
  7. DODEX [Concomitant]
  8. APICOBAL [Concomitant]
  9. CALCIDINE GRANULA [Concomitant]

REACTIONS (2)
  - DRUG EXPOSURE DURING PREGNANCY [None]
  - ABORTION [None]
